FAERS Safety Report 6450480-5 (Version None)
Quarter: 2009Q4

REPORT INFORMATION
  Report Type: 
  Country: None (occurrence: None)
  Receive Date: 20091123
  Receipt Date: 20091117
  Transmission Date: 20100525
  Serious: Yes (Other)
  Sender: FDA-Public Use
  Company Number: US-JNJCH-2009026759

PATIENT
  Sex: Female
  Weight: 61.2 kg

DRUGS (1)
  1. LISTERINE WHITENING PRE-BRUSH RINSE [Suspect]
     Indication: DENTAL CARE
     Dosage: TEXT:10 ML ONCE A DAY
     Route: 048
     Dates: start: 20090904, end: 20091005

REACTIONS (4)
  - GINGIVAL DISORDER [None]
  - GINGIVAL EROSION [None]
  - GINGIVAL RECESSION [None]
  - INCORRECT DOSE ADMINISTERED [None]
